FAERS Safety Report 11569721 (Version 1)
Quarter: 2015Q3

REPORT INFORMATION
  Report Type: Spontaneous
  Country: US (occurrence: US)
  Receive Date: 20150929
  Receipt Date: 20150929
  Transmission Date: 20151125
  Serious: No
  Sender: FDA-Public Use
  Company Number: US-BAYER-2015-426321

PATIENT
  Age: 82 Year
  Sex: Female
  Weight: 55.78 kg

DRUGS (1)
  1. MIRALAX [Suspect]
     Active Substance: POLYETHYLENE GLYCOL 3350
     Dosage: 1 DF, ONCE
     Route: 048
     Dates: start: 20150916

REACTIONS (2)
  - Product use issue [None]
  - Off label use [None]
